FAERS Safety Report 11242575 (Version 1)
Quarter: 2015Q3

REPORT INFORMATION
  Report Type: Spontaneous
  Country: BR (occurrence: BR)
  Receive Date: 20150707
  Receipt Date: 20150707
  Transmission Date: 20151125
  Serious: Yes (Other)
  Sender: FDA-Public Use
  Company Number: BR-ASTRAZENECA-2015SE64832

PATIENT
  Age: 61 Year
  Sex: Female
  Weight: 48 kg

DRUGS (8)
  1. OMEPRAZOLE. [Suspect]
     Active Substance: OMEPRAZOLE
     Indication: GASTRIC DISORDER
     Route: 048
  2. DOMPERIDONE [Concomitant]
     Active Substance: DOMPERIDONE
     Indication: DYSPEPSIA
     Dosage: THREE TIMES A DAY
     Route: 048
  3. SYMBICORT [Suspect]
     Active Substance: BUDESONIDE\FORMOTEROL FUMARATE DIHYDRATE
     Indication: ASTHMA
     Dosage: ALENIA, EVERY SIX HOURS
     Route: 055
     Dates: start: 2008, end: 201505
  4. ALENDRONATE [Concomitant]
     Active Substance: ALENDRONATE SODIUM
     Indication: OSTEOPOROSIS
     Route: 048
  5. SYMBICORT [Suspect]
     Active Substance: BUDESONIDE\FORMOTEROL FUMARATE DIHYDRATE
     Indication: ASTHMA
     Dosage: 320/9 MCG, EVERY SIX HOURS
     Route: 055
     Dates: start: 201505
  6. LOSARTAN. [Concomitant]
     Active Substance: LOSARTAN
     Indication: BLOOD PRESSURE ABNORMAL
     Route: 048
  7. OXYGEN. [Concomitant]
     Active Substance: OXYGEN
     Indication: SLEEP DISORDER
  8. VITAMIN D [Concomitant]
     Active Substance: CHOLECALCIFEROL
     Dosage: DAILY
     Route: 048

REACTIONS (3)
  - Asthmatic crisis [Recovered/Resolved]
  - Off label use [Not Recovered/Not Resolved]
  - Device use error [Not Recovered/Not Resolved]

NARRATIVE: CASE EVENT DATE: 2008
